FAERS Safety Report 19520618 (Version 2)
Quarter: 2024Q4

REPORT INFORMATION
  Report Type: Spontaneous
  Country: NL (occurrence: NL)
  Receive Date: 20210712
  Receipt Date: 20241003
  Transmission Date: 20250115
  Serious: Yes (Other)
  Sender: ROCHE
  Company Number: NL-CELLTRION HEALTHCARE HUNGARY KFT-2021NL008581

PATIENT
  Age: 76 Year

DRUGS (2)
  1. RITUXIMAB [Suspect]
     Active Substance: RITUXIMAB
     Indication: B-cell small lymphocytic lymphoma
     Route: 041
  2. LEUKERAN [Concomitant]
     Active Substance: CHLORAMBUCIL

REACTIONS (2)
  - Off label use [Unknown]
  - Capillary leak syndrome [Unknown]
